FAERS Safety Report 21225482 (Version 2)
Quarter: 2022Q3

REPORT INFORMATION
  Report Type: Spontaneous
  Country: IL (occurrence: IL)
  Receive Date: 20220818
  Receipt Date: 20220919
  Transmission Date: 20221026
  Serious: Yes (Hospitalization, Other)
  Sender: FDA-Public Use
  Company Number: IL-SUN PHARMACEUTICAL INDUSTRIES LTD-2022R1-348527

PATIENT
  Age: 78 Year
  Sex: Female

DRUGS (2)
  1. FLECAINIDE [Suspect]
     Active Substance: FLECAINIDE
     Indication: Atrial fibrillation
     Dosage: 100 MILLIGRAM, BID
     Route: 048
     Dates: start: 20211029
  2. BISOPROLOL [Suspect]
     Active Substance: BISOPROLOL
     Indication: Atrial fibrillation
     Dosage: 2.5 MILLIGRAM, OD
     Route: 065

REACTIONS (8)
  - Acute kidney injury [Unknown]
  - Atrial flutter [Unknown]
  - Bradycardia [Unknown]
  - Electrocardiogram QRS complex prolonged [Unknown]
  - Nodal rhythm [Unknown]
  - Sinus arrest [Unknown]
  - Tachycardia [Unknown]
  - Toxicity to various agents [Unknown]

NARRATIVE: CASE EVENT DATE: 20211102
